FAERS Safety Report 5719537 (Version 17)
Quarter: 2012Q4

REPORT INFORMATION
  Report Type: 
  Country: US (occurrence: US)
  Receive Date: 20041228
  Receipt Date: 20121124
  Transmission Date: 20130627
  Serious: Yes (Hospitalization, Disabling, Other)
  Sender: FDA-Public Use
  Company Number: PHEH2004US02126

PATIENT
  Age: 65 Year
  Sex: Female

DRUGS (50)
  1. AREDIA [Suspect]
     Indication: MULTIPLE MYELOMA
     Dosage: 90 mg, QMO
     Route: 042
     Dates: start: 199706, end: 200410
  2. AREDIA [Suspect]
  3. TOPROL XL [Concomitant]
     Dosage: 100 mg, QD
  4. CATAPRES [Concomitant]
  5. COZAAR [Concomitant]
  6. NORVASC [Concomitant]
  7. FUROSEMIDE [Concomitant]
  8. SYNTHROID [Concomitant]
  9. THALIDOMIDE [Concomitant]
     Dosage: 50 mg, QD
     Dates: start: 199906, end: 200001
  10. THALIDOMIDE [Concomitant]
     Dosage: 100 mg, QD
     Dates: start: 200001
  11. PROTONIX [Concomitant]
     Dosage: 40 mg, QD
  12. MELPHALAN [Concomitant]
     Dates: start: 199808, end: 199905
  13. PREDNISONE [Concomitant]
     Dates: start: 199808, end: 199905
  14. PREVACID [Concomitant]
  15. THALIDOMIDE [Concomitant]
     Dosage: 100 mg, UNK
  16. OMEPRAZOLE [Concomitant]
     Dosage: 20 mg, UNK
  17. B COMPLEX [Concomitant]
  18. CALCIUM CITRATE [Concomitant]
     Dosage: 1200 mg, UNK
  19. ECOTRIN [Concomitant]
     Dosage: 81 mg, UNK
  20. INSULIN [Concomitant]
  21. MORPHINE [Concomitant]
  22. LABETALOL [Concomitant]
  23. RANITIDINE [Concomitant]
  24. NEURONTIN [Concomitant]
  25. PHENERGAN ^WYETH-AYERST^ [Concomitant]
  26. STOOL SOFTENER [Concomitant]
  27. REFRESH                            /00880201/ [Concomitant]
  28. SYSTANE (PROPYLENE GLYCOL/MACROGOL) [Concomitant]
  29. CENTRUM SILVER [Concomitant]
  30. AUGMENTIN                               /SCH/ [Concomitant]
  31. ACYCLOVIR [Concomitant]
  32. ATIVAN [Concomitant]
  33. BENADRYL ^ACHE^ [Concomitant]
  34. CEFTAZIDIME [Concomitant]
  35. FILGRASTIM [Concomitant]
  36. HYDROCORTISON                           /CZE/ [Concomitant]
  37. KAOPECTATE [Concomitant]
  38. LOTRIMIN [Concomitant]
  39. MYCOSTATIN [Concomitant]
  40. KAPIDEX [Concomitant]
  41. VITAMIN B COMPLEX [Concomitant]
  42. CULTURELLE [Concomitant]
  43. MULTIVIT [Concomitant]
  44. VITAMIN C [Concomitant]
  45. IRON [Concomitant]
  46. ZESTRIL [Concomitant]
     Indication: HYPERTENSION
  47. GENTAMICIN [Concomitant]
     Indication: FEBRILE NEUTROPENIA
     Dates: start: 19941205
  48. PROCARDIA [Concomitant]
     Dates: start: 19941121
  49. FORTAZ [Concomitant]
     Indication: FEBRILE NEUTROPENIA
     Dates: start: 19941204
  50. IMODIUM [Concomitant]

REACTIONS (101)
  - Pneumonia [Unknown]
  - Pyrexia [Unknown]
  - Diabetes mellitus [Unknown]
  - Arthritis [Unknown]
  - Spinal osteoarthritis [Unknown]
  - Osteoarthritis [Unknown]
  - Cervical spinal stenosis [Unknown]
  - Cataract [Unknown]
  - Optic nerve cupping [Unknown]
  - Vitreous floaters [Unknown]
  - Vision blurred [Unknown]
  - VIIth nerve paralysis [Unknown]
  - Nerve root lesion [Unknown]
  - Neuralgia [Unknown]
  - Neck pain [Unknown]
  - Pleural effusion [Unknown]
  - Dyspnoea exertional [Unknown]
  - Foot deformity [Unknown]
  - Rotator cuff syndrome [Unknown]
  - Pain in extremity [Unknown]
  - Muscular weakness [Unknown]
  - Movement disorder [Unknown]
  - Diarrhoea [Unknown]
  - Osteonecrosis of jaw [Unknown]
  - Soft tissue disorder [Unknown]
  - Bone disorder [Unknown]
  - Purulent discharge [Unknown]
  - Joint dislocation [Unknown]
  - Mandibular prosthesis user [Unknown]
  - Tooth abscess [Unknown]
  - Device failure [Unknown]
  - Bone lesion [Unknown]
  - Pain in jaw [Not Recovered/Not Resolved]
  - Gastrooesophageal reflux disease [Unknown]
  - Nausea [Unknown]
  - Vomiting [Unknown]
  - Sinusitis [Unknown]
  - Oedema peripheral [Unknown]
  - Staphylococcal infection [Recovering/Resolving]
  - Foreign body [Unknown]
  - Obstructive airways disorder [Unknown]
  - Hyperglycaemia [Unknown]
  - Stress urinary incontinence [Unknown]
  - Urge incontinence [Unknown]
  - Atrophic vulvovaginitis [Unknown]
  - Enterocele [Unknown]
  - Rectocele [Unknown]
  - Faecal incontinence [Unknown]
  - Cystitis interstitial [Unknown]
  - Anaemia [Unknown]
  - Tremor [Unknown]
  - Neuropathy peripheral [Unknown]
  - Osteomyelitis chronic [Unknown]
  - Herpes zoster [Recovering/Resolving]
  - Spondylolisthesis [Unknown]
  - Osteopenia [Unknown]
  - Osteomalacia [Unknown]
  - Insomnia [Unknown]
  - Granuloma [Unknown]
  - Mouth cyst [Unknown]
  - Cystocele [Unknown]
  - Increased ventricular afterload [Unknown]
  - Renal osteodystrophy [Unknown]
  - Renal failure chronic [Unknown]
  - Tubulointerstitial nephritis [Unknown]
  - Syncope [Unknown]
  - Fall [Unknown]
  - Dehydration [Unknown]
  - Urinary tract infection [Unknown]
  - Groin pain [Unknown]
  - Bundle branch block right [Unknown]
  - Pancreatic atrophy [Unknown]
  - Chest pain [Unknown]
  - Arteriosclerosis [Unknown]
  - Macular degeneration [Unknown]
  - Thrombocytopenia [Unknown]
  - Pancytopenia [Unknown]
  - Eczema [Unknown]
  - Rash maculo-papular [Unknown]
  - Hypoaesthesia [Unknown]
  - Nervousness [Unknown]
  - Muscle spasms [Unknown]
  - Headache [Unknown]
  - Contusion [Unknown]
  - Dysphagia [Unknown]
  - Femoral neck fracture [Unknown]
  - Osteoporosis [Unknown]
  - Joint effusion [Unknown]
  - Dyspepsia [Unknown]
  - Immunosuppression [Unknown]
  - Nocturia [Unknown]
  - Deafness [Unknown]
  - Ear pain [Unknown]
  - Dizziness [Unknown]
  - Dyskinesia [Unknown]
  - Haematoma [Unknown]
  - Injury [Unknown]
  - Loss of consciousness [Unknown]
  - Adrenal mass [Unknown]
  - Spinal claudication [Unknown]
  - Cerumen impaction [Unknown]
